FAERS Safety Report 9183807 (Version 1)
Quarter: 2013Q1

REPORT INFORMATION
  Report Type: Spontaneous
  Country: US (occurrence: US)
  Receive Date: 20130322
  Receipt Date: 20130322
  Transmission Date: 20140127
  Serious: No
  Sender: FDA-Public Use
  Company Number: US-BRISTOL-MYERS SQUIBB COMPANY-16614448

PATIENT
  Age: 49 Year
  Sex: Male
  Weight: 70.75 kg

DRUGS (1)
  1. ERBITUX [Suspect]
     Indication: COLON CANCER
     Route: 042
     Dates: start: 20120514

REACTIONS (3)
  - Pigmentation disorder [Recovered/Resolved]
  - Rash pruritic [Unknown]
  - Pruritus [Unknown]
